FAERS Safety Report 4622567-0 (Version None)
Quarter: 2005Q1

REPORT INFORMATION
  Report Type: 
  Country: None (occurrence: None)
  Receive Date: 20050325
  Receipt Date: 20050325
  Transmission Date: 20050727
  Serious: No
  Sender: FDA-Public Use
  Company Number: None

PATIENT
  Age: 64 Year
  Sex: Female
  Weight: 63.5036 kg

DRUGS (1)
  1. PROTOPIC OINTMENT 0.1%      FUJISAWA HEALTHCARE, INC. [Suspect]
     Indication: LICHEN SCLEROSUS
     Dosage: TO COVER    X4/WEEK   TOPICAL
     Route: 061
     Dates: start: 20011117, end: 20051108

REACTIONS (2)
  - APPLICATION SITE REACTION [None]
  - EPIDERMAL NAEVUS [None]
